FAERS Safety Report 12499831 (Version 1)
Quarter: 2016Q2

REPORT INFORMATION
  Report Type: Report from Study
  Country: JP (occurrence: JP)
  Receive Date: 20160627
  Receipt Date: 20160627
  Transmission Date: 20160815
  Serious: Yes (Other)
  Sender: FDA-Public Use
  Company Number: JP-VIFOR (INTERNATIONAL) INC.-VIT-2016-02940

PATIENT
  Age: 84 Year
  Sex: Female

DRUGS (10)
  1. PROTECADIN [Concomitant]
     Active Substance: LAFUTIDINE
     Route: 048
     Dates: start: 20150929
  2. MIRCERA [Suspect]
     Active Substance: METHOXY POLYETHYLENE GLYCOL-EPOETIN BETA
     Route: 042
     Dates: start: 20140324, end: 20140324
  3. CALBLOCK [Concomitant]
     Active Substance: AZELNIDIPINE
     Route: 048
     Dates: start: 20150929
  4. MIRCERA [Suspect]
     Active Substance: METHOXY POLYETHYLENE GLYCOL-EPOETIN BETA
     Route: 042
     Dates: start: 20131211, end: 20140225
  5. MIRCERA [Suspect]
     Active Substance: METHOXY POLYETHYLENE GLYCOL-EPOETIN BETA
     Route: 042
     Dates: start: 20150825, end: 20150929
  6. FEBURIC [Concomitant]
     Active Substance: FEBUXOSTAT
     Route: 048
     Dates: start: 20150929
  7. CARDENALIN [Concomitant]
     Active Substance: DOXAZOSIN MESYLATE
     Route: 048
     Dates: start: 20150929
  8. MIRCERA [Suspect]
     Active Substance: METHOXY POLYETHYLENE GLYCOL-EPOETIN BETA
     Indication: NEPHROGENIC ANAEMIA
     Route: 042
     Dates: start: 20131022, end: 20131119
  9. MIRCERA [Suspect]
     Active Substance: METHOXY POLYETHYLENE GLYCOL-EPOETIN BETA
     Route: 042
     Dates: start: 20140414, end: 20150721
  10. MAINTATE [Concomitant]
     Active Substance: BISOPROLOL FUMARATE
     Route: 048
     Dates: start: 20150623, end: 20150929

REACTIONS (1)
  - Atrial fibrillation [Recovering/Resolving]

NARRATIVE: CASE EVENT DATE: 20140324
